FAERS Safety Report 8502257-4 (Version None)
Quarter: 2012Q2

REPORT INFORMATION
  Report Type: 
  Country: None (occurrence: None)
  Receive Date: 20120405
  Receipt Date: 20100920
  Transmission Date: 20120825
  Serious: Yes (Other)
  Sender: FDA-Public Use
  Company Number: PHHY2010US61181

PATIENT
  Age: 59 Year
  Sex: Female

DRUGS (5)
  1. TRAZODONE HCL [Concomitant]
  2. LEVOTHYROXINE SODIUM [Concomitant]
  3. BENADRYL (DIPHENNHYDRAMINE HYDROCHLORIDE) [Concomitant]
  4. RECLAST [Suspect]
     Indication: OSTEOPENIA
     Dosage: 5 MG/100ML, INFUSION
     Dates: start: 20100909
  5. ZOCOR [Concomitant]

REACTIONS (2)
  - VERTIGO [None]
  - DIZZINESS [None]
